FAERS Safety Report 9761568 (Version 11)
Quarter: 2016Q1

REPORT INFORMATION
  Report Type: Spontaneous
  Country: US (occurrence: US)
  Receive Date: 20131216
  Receipt Date: 20160211
  Transmission Date: 20160526
  Serious: Yes (Death, Hospitalization, Other)
  Sender: FDA-Public Use
  Company Number: US-TEVA-448751USA

PATIENT
  Sex: Male

DRUGS (1)
  1. WARFARIN [Suspect]
     Active Substance: WARFARIN
     Indication: PRODUCT USED FOR UNKNOWN INDICATION
     Dosage: EITHER 3 OR 5
     Route: 065

REACTIONS (10)
  - Cerebrovascular accident [Fatal]
  - Haemorrhage [Unknown]
  - Wound [Unknown]
  - Skin exfoliation [Unknown]
  - Cerebral haemorrhage [Fatal]
  - Skin necrosis [Unknown]
  - Coma [Fatal]
  - Fall [Unknown]
  - Coagulation time prolonged [Fatal]
  - Brain oedema [Unknown]
